FAERS Safety Report 8166850-3 (Version None)
Quarter: 2012Q1

REPORT INFORMATION
  Report Type: 
  Country: None (occurrence: None)
  Receive Date: 20120103
  Receipt Date: 20111021
  Transmission Date: 20120608
  Serious: No
  Sender: FDA-Public Use
  Company Number: AE-2011-002548

PATIENT
  Age: 53 Year
  Sex: Female
  Weight: 73.4827 kg

DRUGS (5)
  1. PEGASYS [Concomitant]
  2. NORVASC [Concomitant]
  3. INCIVEK [Suspect]
     Dosage: 2250 MG (750 MG, 1 IN 8 HR), ORAL
     Route: 048
     Dates: start: 20110926
  4. RIBAVIRIN [Concomitant]
  5. HYDROCHLOROTHIAZIDE [Concomitant]

REACTIONS (2)
  - INFLUENZA LIKE ILLNESS [None]
  - PRURITUS [None]
